FAERS Safety Report 6094974-3 (Version None)
Quarter: 2009Q1

REPORT INFORMATION
  Report Type: 
  Country: None (occurrence: None)
  Receive Date: 20090227
  Receipt Date: 20090217
  Transmission Date: 20090719
  Serious: Yes (Other)
  Sender: FDA-Public Use
  Company Number: MY-PFIZER INC-2009173401

PATIENT

DRUGS (4)
  1. DALACIN [Suspect]
     Dosage: UNK
     Route: 042
     Dates: start: 20080125
  2. CO-TRIMOXAZOLE [Concomitant]
  3. CLOXACILLIN SODIUM [Concomitant]
  4. PYRIMETHAMINE TAB [Concomitant]

REACTIONS (3)
  - RASH ERYTHEMATOUS [None]
  - RASH MACULO-PAPULAR [None]
  - SKIN HYPERPIGMENTATION [None]
